FAERS Safety Report 6972207-0 (Version None)
Quarter: 2010Q3

REPORT INFORMATION
  Report Type: 
  Country: None (occurrence: None)
  Receive Date: 20100909
  Receipt Date: 20100901
  Transmission Date: 20110219
  Serious: No
  Sender: FDA-Public Use
  Company Number: US-BIOGENIDEC-2010BI030507

PATIENT
  Age: 30 Year
  Sex: Female

DRUGS (2)
  1. AVONEX [Suspect]
     Indication: MULTIPLE SCLEROSIS
     Route: 030
     Dates: start: 20090515, end: 20091001
  2. AVONEX [Suspect]
     Route: 030
     Dates: start: 20100624

REACTIONS (5)
  - DIZZINESS [None]
  - DYSPHEMIA [None]
  - FATIGUE [None]
  - HOT FLUSH [None]
  - MEMORY IMPAIRMENT [None]
